FAERS Safety Report 6567786-1 (Version None)
Quarter: 2010Q1

REPORT INFORMATION
  Report Type: 
  Country: None (occurrence: None)
  Receive Date: 20100203
  Receipt Date: 20100126
  Transmission Date: 20100710
  Serious: Yes (Hospitalization)
  Sender: FDA-Public Use
  Company Number: JP-ASTRAZENECA-2010SE04074

PATIENT
  Age: 87 Year
  Sex: Female

DRUGS (9)
  1. ECARD COMBINATION [Suspect]
     Indication: HYPERTENSION
     Route: 048
     Dates: start: 20091126, end: 20100113
  2. GASTER [Concomitant]
     Route: 065
  3. LASIX [Concomitant]
     Route: 065
  4. AMLODIN OD [Concomitant]
     Route: 048
  5. FRANDOL TAPE [Concomitant]
     Route: 062
  6. EPADEL S900 [Concomitant]
     Route: 048
  7. ALESION [Concomitant]
     Route: 048
  8. AMOBAN [Concomitant]
     Route: 048
  9. PLETAL [Concomitant]
     Route: 048

REACTIONS (1)
  - ACUTE CORONARY SYNDROME [None]
